FAERS Safety Report 8386632-7 (Version None)
Quarter: 2012Q2

REPORT INFORMATION
  Report Type: 
  Country: None (occurrence: None)
  Receive Date: 20120525
  Receipt Date: 20120202
  Transmission Date: 20120825
  Serious: No
  Sender: FDA-Public Use
  Company Number: US-GLAXOSMITHKLINE-A0964364A

PATIENT
  Age: 59 Year
  Sex: Female
  Weight: 57.7 kg

DRUGS (3)
  1. HYCAMTIN [Suspect]
     Route: 042
     Dates: start: 20120109, end: 20120113
  2. COMPAZINE [Concomitant]
  3. LEXAPRO [Concomitant]

REACTIONS (1)
  - RASH [None]
